FAERS Safety Report 7136160-1 (Version None)
Quarter: 2010Q4

REPORT INFORMATION
  Report Type: 
  Country: None (occurrence: None)
  Receive Date: 20101206
  Receipt Date: 20101104
  Transmission Date: 20110411
  Serious: Yes (Death, Hospitalization, Other)
  Sender: FDA-Public Use
  Company Number: JP-AMGEN-JPNSP2010004510

PATIENT

DRUGS (11)
  1. ENBREL [Suspect]
     Indication: RHEUMATOID ARTHRITIS
     Dosage: 25 MG, 2X/WEEK
     Route: 058
     Dates: start: 20100707, end: 20100721
  2. RHEUMATREX [Suspect]
     Indication: RHEUMATOID ARTHRITIS
     Dosage: 4 MG, WEEKLY
     Route: 048
     Dates: end: 20100606
  3. PREDNISOLONE [Suspect]
     Indication: RHEUMATOID ARTHRITIS
     Dosage: 7.5 MG, UNK
     Route: 042
     Dates: start: 20100702, end: 20100722
  4. UBRETID [Concomitant]
     Indication: URINARY RETENTION
     Dosage: 5 MG, 1X/DAY
     Route: 042
     Dates: start: 20100622, end: 20100722
  5. CYANOCOBALAMIN [Concomitant]
     Indication: NERVOUSNESS
     Dosage: 1000 UG, 1X/DAY
     Route: 042
     Dates: start: 20100603, end: 20100722
  6. ALFAROL [Concomitant]
     Indication: OSTEOPOROSIS
     Dosage: 1 UG, 1X/DAY
     Route: 042
     Dates: start: 20100603, end: 20100722
  7. PROMAC /JPN/ [Concomitant]
     Indication: GASTRITIS
     Dosage: 150 MG, 1X/DAY
     Route: 042
     Dates: start: 20100603, end: 20100722
  8. LANTUS [Concomitant]
     Indication: DIABETES MELLITUS
     Dosage: UNK
     Route: 058
     Dates: start: 20100605, end: 20100722
  9. BIOFERMIN [Concomitant]
     Dosage: 1 G, 1X/DAY
     Route: 042
     Dates: start: 20100603, end: 20100722
  10. BEPRIDIL [Concomitant]
     Dosage: 100 MG, UNK
     Route: 042
     Dates: start: 20100605, end: 20100722
  11. BISOPROLOL                         /00802602/ [Concomitant]

REACTIONS (15)
  - ATRIAL FIBRILLATION [None]
  - CARDIO-RESPIRATORY ARREST [None]
  - CEREBRAL INFARCTION [None]
  - GAIT DISTURBANCE [None]
  - HEMIPLEGIA [None]
  - HYPOPHAGIA [None]
  - ILEUS [None]
  - KLEBSIELLA SEPSIS [None]
  - MOVEMENT DISORDER [None]
  - MUSCULAR WEAKNESS [None]
  - PROGRESSIVE MULTIFOCAL LEUKOENCEPHALOPATHY [None]
  - PYREXIA [None]
  - SPEECH DISORDER [None]
  - TACHYCARDIA PAROXYSMAL [None]
  - URINARY TRACT INFECTION [None]
